FAERS Safety Report 5366132-9 (Version None)
Quarter: 2007Q2

REPORT INFORMATION
  Report Type: 
  Country: None (occurrence: None)
  Receive Date: 20070530
  Receipt Date: 20070203
  Transmission Date: 20071010
  Serious: No
  Sender: FDA-Public Use
  Company Number: 2005PV001272

PATIENT
  Age: 54 Year
  Sex: Female

DRUGS (1)
  1. BYETTA [Suspect]
     Indication: DIABETES MELLITUS
     Dosage: 10 MCG;BID;SC   5 MCG;BID;SC
     Route: 058
     Dates: start: 20050815

REACTIONS (7)
  - INJECTION SITE BRUISING [None]
  - INJECTION SITE HAEMORRHAGE [None]
  - INJECTION SITE PRURITUS [None]
  - INJECTION SITE REACTION [None]
  - MALAISE [None]
  - NAUSEA [None]
  - VOMITING [None]
